FAERS Safety Report 6072387-8 (Version None)
Quarter: 2009Q1

REPORT INFORMATION
  Report Type: 
  Country: None (occurrence: None)
  Receive Date: 20090209
  Receipt Date: 20090209
  Transmission Date: 20090719
  Serious: Yes (Other)
  Sender: FDA-Public Use
  Company Number: None

PATIENT
  Age: 49 Year
  Sex: Female
  Weight: 54.4316 kg

DRUGS (1)
  1. BUDEPRION XL 150 MG TEVA [Suspect]
     Indication: DEPRESSION
     Dosage: 300 MG ONCE DAILY PO
     Route: 048
     Dates: start: 20081212, end: 20090105

REACTIONS (2)
  - PRODUCT QUALITY ISSUE [None]
  - PRURITUS [None]
